FAERS Safety Report 4806349-2 (Version None)
Quarter: 2005Q4

REPORT INFORMATION
  Report Type: 
  Country: None (occurrence: None)
  Receive Date: 20051021
  Receipt Date: 20051010
  Transmission Date: 20060501
  Serious: Yes (Hospitalization)
  Sender: FDA-Public Use
  Company Number: GB-ROCHE-420515

PATIENT
  Age: 54 Year
  Sex: Female
  Weight: 82 kg

DRUGS (6)
  1. IBANDRONIC ACID [Suspect]
     Indication: OSTEOPOROSIS POSTMENOPAUSAL
     Dosage: STUDY REGIMEN ALTERED ON 11/JULY/2005 BECAUSE OF ITCHING REACTION ON 06/JULY/2005.
     Route: 048
     Dates: start: 20050519, end: 20050617
  2. ATENOLOL [Suspect]
     Indication: HYPERTENSION
     Route: 065
     Dates: start: 20030917
  3. BENDROFLUAZIDE [Suspect]
     Indication: HYPERTENSION
     Route: 065
     Dates: start: 20030827
  4. ETODOLAC [Suspect]
     Indication: OSTEOARTHRITIS
     Route: 065
     Dates: start: 20050418
  5. ACETAMINOPHEN [Suspect]
     Indication: OSTEOARTHRITIS
     Route: 065
     Dates: start: 20050418
  6. CALCICHEW D3 FORTE [Concomitant]
     Indication: OSTEOPENIA
     Dosage: OTHER INDICATION: BACK PAIN.  NO UNITS PROVIDED.
     Dates: start: 20050918

REACTIONS (2)
  - CHEST PAIN [None]
  - PRURITUS [None]
